FAERS Safety Report 17262287 (Version 3)
Quarter: 2024Q1

REPORT INFORMATION
  Report Type: Spontaneous
  Country: US (occurrence: US)
  Receive Date: 20200113
  Receipt Date: 20240326
  Transmission Date: 20240410
  Serious: Yes (Death, Other)
  Sender: FDA-Public Use
  Company Number: US-VERTEX PHARMACEUTICALS-2020-000144

PATIENT
  Age: 28 Year
  Sex: Female

DRUGS (12)
  1. TRIKAFTA [Suspect]
     Active Substance: ELEXACAFTOR\IVACAFTOR\TEZACAFTOR
     Indication: Cystic fibrosis
     Dosage: TWICE WEEKLY DUE TO VORICONAZOLE INTERACTION
     Route: 048
     Dates: start: 20191210, end: 201912
  2. AMIKACIN [Concomitant]
     Active Substance: AMIKACIN
     Route: 042
  3. CEFTAZIDIME [Concomitant]
     Active Substance: CEFTAZIDIME
     Route: 042
  4. ROXITHROMYCIN [Concomitant]
     Active Substance: ROXITHROMYCIN
     Route: 042
  5. ISOCONAZOLE [Concomitant]
     Active Substance: ISOCONAZOLE
  6. CEFTALIN [Concomitant]
     Route: 042
  7. AZITHROMYCIN [Concomitant]
     Active Substance: AZITHROMYCIN
  8. DORNASE ALFA [Concomitant]
     Active Substance: DORNASE ALFA
  9. SODIUM CHLORIDE [Concomitant]
     Active Substance: SODIUM CHLORIDE
  10. MUCOMYST [Concomitant]
     Active Substance: ACETYLCYSTEINE
  11. SALMETEROL [Concomitant]
     Active Substance: SALMETEROL
  12. VORICONAZOLE [Concomitant]
     Active Substance: VORICONAZOLE

REACTIONS (3)
  - Acute respiratory failure [Fatal]
  - Acute respiratory distress syndrome [Fatal]
  - Infective pulmonary exacerbation of cystic fibrosis [Fatal]

NARRATIVE: CASE EVENT DATE: 20191201
